FAERS Safety Report 15439220 (Version 1)
Quarter: 2018Q3

REPORT INFORMATION
  Report Type: Spontaneous
  Country: US (occurrence: US)
  Receive Date: 20180924
  Receipt Date: 20180924
  Transmission Date: 20181010
  Serious: Yes (Life-Threatening)
  Sender: FDA-Public Use
  Company Number: None

PATIENT
  Age: 45 Year
  Sex: Male
  Weight: 104.33 kg

DRUGS (5)
  1. AMLODIPINE [Concomitant]
     Active Substance: AMLODIPINE BESYLATE
  2. IRBESARTAN. [Concomitant]
     Active Substance: IRBESARTAN
  3. VENLAFAXINE [Concomitant]
     Active Substance: VENLAFAXINE HYDROCHLORIDE
  4. AMEPERZOLE [Concomitant]
  5. VALSARTAN 320MG TABLET GENERIC FOR EQUIVALENT FOR DIOVAN 320 [Suspect]
     Active Substance: VALSARTAN
     Indication: HYPERTENSION
     Dosage: ?          QUANTITY:1 DF DOSAGE FORM;?
     Route: 048
     Dates: start: 20111102, end: 20180813

REACTIONS (8)
  - Abdominal pain upper [None]
  - Product use issue [None]
  - Insomnia [None]
  - Arthralgia [None]
  - Oesophageal carcinoma [None]
  - Fatigue [None]
  - Dyspepsia [None]
  - Pancreatitis [None]

NARRATIVE: CASE EVENT DATE: 20130905
